FAERS Safety Report 9123411 (Version 1)
Quarter: 2013Q1

REPORT INFORMATION
  Report Type: Spontaneous
  Country: US (occurrence: US)
  Receive Date: 20130227
  Receipt Date: 20130227
  Transmission Date: 20140127
  Serious: No
  Sender: FDA-Public Use
  Company Number: US-PFIZER INC-2013066708

PATIENT
  Age: 31 Year
  Sex: Male
  Weight: 95.24 kg

DRUGS (1)
  1. PROTONIX [Suspect]
     Indication: GASTRIC ULCER
     Dosage: 40 MG, 1X/DAY
     Dates: start: 20130211, end: 201302

REACTIONS (2)
  - Erectile dysfunction [Unknown]
  - Diarrhoea [Recovered/Resolved]
